FAERS Safety Report 5286403-4 (Version None)
Quarter: 2007Q2

REPORT INFORMATION
  Report Type: 
  Country: None (occurrence: None)
  Receive Date: 20070404
  Receipt Date: 20070326
  Transmission Date: 20071010
  Serious: Yes (Hospitalization)
  Sender: FDA-Public Use
  Company Number: FR-AMGEN-UK216740

PATIENT
  Sex: Female

DRUGS (3)
  1. ARANESP [Suspect]
     Indication: DRUG USE FOR UNKNOWN INDICATION
     Route: 058
     Dates: start: 20061007
  2. COPEGUS [Suspect]
     Route: 048
     Dates: start: 20061007
  3. PEGASYS [Concomitant]
     Route: 058
     Dates: start: 20060915

REACTIONS (3)
  - ECZEMA [None]
  - INJECTION SITE ERYTHEMA [None]
  - PRURIGO [None]
